FAERS Safety Report 7226747-X (Version None)
Quarter: 2011Q1

REPORT INFORMATION
  Report Type: 
  Country: None (occurrence: None)
  Receive Date: 20110105
  Receipt Date: 20101221
  Transmission Date: 20110831
  Serious: Yes (Hospitalization)
  Sender: FDA-Public Use
  Company Number: AUR-APL-2010-03206

PATIENT
  Sex: Male

DRUGS (2)
  1. CLOPIXOL [Suspect]
     Indication: SCHIZOPHRENIA
     Dosage: 500MG - WEEKLY - IM
     Route: 030
     Dates: start: 20101203
  2. SIMVASTATIN [Suspect]
     Dates: start: 20101203, end: 20101201

REACTIONS (2)
  - MALAISE [None]
  - MYOSITIS [None]
